FAERS Safety Report 11167296 (Version 1)
Quarter: 2015Q2

REPORT INFORMATION
  Report Type: Spontaneous
  Country: US (occurrence: US)
  Receive Date: 20150605
  Receipt Date: 20150605
  Transmission Date: 20150821
  Serious: Yes (Hospitalization, Other)
  Sender: FDA-Public Use
  Company Number: US-ABBVIE-15K-163-1400283-00

PATIENT
  Age: 65 Year
  Sex: Male

DRUGS (2)
  1. HUMIRA [Suspect]
     Active Substance: ADALIMUMAB
     Route: 065
     Dates: start: 2014, end: 20150521
  2. HUMIRA [Suspect]
     Active Substance: ADALIMUMAB
     Indication: RHEUMATOID ARTHRITIS
     Route: 065
     Dates: end: 2014

REACTIONS (17)
  - Dysphagia [Not Recovered/Not Resolved]
  - Myalgia [Not Recovered/Not Resolved]
  - Haemoglobin decreased [Unknown]
  - Mobility decreased [Not Recovered/Not Resolved]
  - White blood cell count increased [Unknown]
  - Asthenia [Not Recovered/Not Resolved]
  - Arthralgia [Not Recovered/Not Resolved]
  - Sepsis [Not Recovered/Not Resolved]
  - Blood glucose increased [Unknown]
  - Polycythaemia [Unknown]
  - Red blood cell count decreased [Unknown]
  - Body temperature decreased [Unknown]
  - Ligamentitis [Recovering/Resolving]
  - Lymphoma [Not Recovered/Not Resolved]
  - Rheumatoid arthritis [Recovering/Resolving]
  - Hyperhidrosis [Not Recovered/Not Resolved]
  - Blood sodium abnormal [Unknown]

NARRATIVE: CASE EVENT DATE: 2014
